FAERS Safety Report 15027449 (Version 1)
Quarter: 2018Q2

REPORT INFORMATION
  Report Type: Report from Study
  Country: US (occurrence: US)
  Receive Date: 20180619
  Receipt Date: 20180619
  Transmission Date: 20180711
  Serious: Yes (Other)
  Sender: FDA-Public Use
  Company Number: US-ACCORD-068472

PATIENT
  Age: 70 Year
  Sex: Male

DRUGS (4)
  1. VINBLASTINE [Suspect]
     Active Substance: VINBLASTINE
     Indication: BLADDER TRANSITIONAL CELL CARCINOMA STAGE II
     Dosage: ON DAY 1 EVERY 2 WEEKS
     Route: 042
  2. DOXORUBICIN [Suspect]
     Active Substance: DOXORUBICIN
     Indication: BLADDER TRANSITIONAL CELL CARCINOMA STAGE II
     Dosage: ON DAY 1 EVERY 2 WEEKS
     Route: 042
  3. CISPLATIN. [Suspect]
     Active Substance: CISPLATIN
     Indication: BLADDER TRANSITIONAL CELL CARCINOMA STAGE II
     Dosage: ON DAY 1 EVERY 2 WEEKS
     Route: 042
  4. METHOTREXATE. [Suspect]
     Active Substance: METHOTREXATE
     Indication: BLADDER TRANSITIONAL CELL CARCINOMA STAGE II
     Dosage: ON DAY 1 EVERY 2 WEEKS
     Route: 042

REACTIONS (5)
  - Decreased appetite [Unknown]
  - Nausea [Unknown]
  - Cytopenia [Unknown]
  - Off label use [Unknown]
  - Fatigue [Unknown]
